FAERS Safety Report 5837204-7 (Version None)
Quarter: 2008Q3

REPORT INFORMATION
  Report Type: 
  Country: None (occurrence: None)
  Receive Date: 20080731
  Receipt Date: 20080626
  Transmission Date: 20090109
  Serious: No
  Sender: FDA-Public Use
  Company Number: US200806002206

PATIENT
  Age: 63 Year
  Sex: Female
  Weight: 102.9 kg

DRUGS (13)
  1. BYETTA [Suspect]
     Indication: TYPE 2 DIABETES MELLITUS
     Dosage: 5 UG, 2/D, SUBCUTANEOUS
     Route: 058
     Dates: start: 20080607
  2. GLIPIZIDE [Concomitant]
  3. CATAPRES-TTS-2 /USA/ (CLONIDINE) [Concomitant]
  4. AVAPRO [Concomitant]
  5. CARDIZEM [Concomitant]
  6. PROTONIX [Concomitant]
  7. SPIRONOLACTONE [Concomitant]
  8. LASIX /USA/ (FUROSEMIDE) [Concomitant]
  9. FISH OIL (FISH OIL) [Concomitant]
  10. MULTIVITAMIN [Concomitant]
  11. ASPIRIN [Concomitant]
  12. MERCAPTOPURINE [Concomitant]
  13. ATENOLOL [Concomitant]

REACTIONS (9)
  - BLOOD GLUCOSE DECREASED [None]
  - BURNING SENSATION [None]
  - FEELING ABNORMAL [None]
  - FEELING HOT [None]
  - HEADACHE [None]
  - HYPERCHLORHYDRIA [None]
  - NAUSEA [None]
  - ORAL DISCOMFORT [None]
  - RASH PRURITIC [None]
